FAERS Safety Report 18472635 (Version 1)
Quarter: 2020Q4

REPORT INFORMATION
  Report Type: Spontaneous
  Country: DE (occurrence: DE)
  Receive Date: 20201106
  Receipt Date: 20201106
  Transmission Date: 20210114
  Serious: Yes (Hospitalization, Other)
  Sender: FDA-Public Use
  Company Number: DE-SHILPA MEDICARE LIMITED-SML-DE-2020-00574

PATIENT
  Age: 61 Year
  Sex: Male

DRUGS (5)
  1. LAXOBERAL [Concomitant]
     Active Substance: SODIUM PICOSULFATE
     Indication: PRODUCT USED FOR UNKNOWN INDICATION
     Dosage: BEDARF, TROPFEN
     Route: 065
  2. METAMIZOLE [Concomitant]
     Active Substance: METAMIZOLE
     Indication: PRODUCT USED FOR UNKNOWN INDICATION
     Dosage: BEDARF 30 GTT BIS ZU 5MAL TGL, TROPFEN
     Route: 065
  3. NALOXONE, OXYCODONE [Concomitant]
     Indication: PRODUCT USED FOR UNKNOWN INDICATION
     Dosage: 20/40 MG, BEDARF BIS ZU 6 MAL TGL
     Route: 065
  4. MOVICOL [Concomitant]
     Active Substance: POLYETHYLENE GLYCOL 3350\POTASSIUM CHLORIDE\SODIUM BICARBONATE\SODIUM CHLORIDE
     Indication: PRODUCT USED FOR UNKNOWN INDICATION
     Dosage: BEDARF
     Route: 065
  5. GEMCITABINE, UNKNOWN [Suspect]
     Active Substance: GEMCITABINE
     Indication: PRODUCT USED FOR UNKNOWN INDICATION
     Route: 065

REACTIONS (9)
  - Somnolence [Unknown]
  - Infection [Unknown]
  - Anaemia [Unknown]
  - General physical health deterioration [Unknown]
  - Thrombocytopenia [Unknown]
  - Pyrexia [Unknown]
  - Decreased appetite [Unknown]
  - Pain [Unknown]
  - Asthenia [Unknown]

NARRATIVE: CASE EVENT DATE: 2020
